FAERS Safety Report 6710734-1 (Version None)
Quarter: 2010Q2

REPORT INFORMATION
  Report Type: 
  Country: None (occurrence: None)
  Receive Date: 20100504
  Receipt Date: 20100504
  Transmission Date: 20101027
  Serious: Yes (Hospitalization, Other)
  Sender: FDA-Public Use
  Company Number: None

PATIENT
  Sex: Female
  Weight: 39.0093 kg

DRUGS (12)
  1. PEG-INTRON [Suspect]
     Indication: HEPATITIS C
     Dosage: 80 MCG/0.5 ML WEEKLY SQ
     Route: 058
     Dates: start: 20100412, end: 20100425
  2. RIBAVIRIN [Suspect]
     Indication: HEPATITIS C
     Dosage: -2- 200 MG AM -3- DAILY PO
     Route: 048
     Dates: start: 20100412, end: 20100425
  3. PILOCARPINE HYDROCHLORIDE [Concomitant]
  4. IRON [Concomitant]
  5. FOLIC ACID [Concomitant]
  6. TYLENOL #3 WITH CODEINE [Concomitant]
  7. ZOLOFT [Concomitant]
  8. VITAMIN A [Concomitant]
  9. XANAX [Concomitant]
  10. TRAZODONE HCL [Concomitant]
  11. SPIRIVA [Concomitant]
  12. NASONEX [Concomitant]

REACTIONS (7)
  - CHEST PAIN [None]
  - DYSPNOEA EXERTIONAL [None]
  - EMPHYSEMA [None]
  - PAIN IN EXTREMITY [None]
  - PAIN IN JAW [None]
  - VASCULAR OCCLUSION [None]
  - WEIGHT DECREASED [None]
